FAERS Safety Report 11101361 (Version 1)
Quarter: 2015Q2

REPORT INFORMATION
  Report Type: Spontaneous
  Country: US (occurrence: US)
  Receive Date: 20150508
  Receipt Date: 20150508
  Transmission Date: 20150821
  Serious: No
  Sender: FDA-Public Use
  Company Number: US-PFIZER INC-2015145663

PATIENT
  Age: 71 Year
  Sex: Female
  Weight: 136 kg

DRUGS (3)
  1. AZULFIDINE [Concomitant]
     Active Substance: SULFASALAZINE
  2. DICLOFENAC SODIUM/MISOPROSTOL [Suspect]
     Active Substance: DICLOFENAC SODIUM\MISOPROSTOL
     Indication: ARTHRITIS
     Dosage: 75/0.2 MG, 2X/DAY
     Route: 048
     Dates: start: 2014
  3. DICLOFENAC SODIUM AND MISOPROSTOL [Suspect]
     Active Substance: DICLOFENAC SODIUM\MISOPROSTOL
     Indication: ARTHRITIS
     Dosage: 75 / 0.2 MG, 2X/DAY
     Route: 048
     Dates: start: 2014, end: 2014

REACTIONS (1)
  - Drug effect incomplete [Unknown]
